FAERS Safety Report 6011634-5 (Version None)
Quarter: 2008Q4

REPORT INFORMATION
  Report Type: 
  Country: None (occurrence: None)
  Receive Date: 20081218
  Receipt Date: 19860520
  Transmission Date: 20090506
  Serious: Yes (Death, Life-Threatening)
  Sender: FDA-Public Use
  Company Number: ZA-ROCHE-860150003001

PATIENT
  Age: 69 Year
  Sex: Female

DRUGS (2)
  1. INTERFERON ALFA-2A [Suspect]
     Indication: MULTIPLE MYELOMA
     Dosage: CUMULATIVE 1248 MILLION IU.
     Route: 042
     Dates: start: 19850118, end: 19850501
  2. MITHRAMYCIN [Concomitant]

REACTIONS (3)
  - AMNESIA [None]
  - DISEASE PROGRESSION [None]
  - THROMBOCYTOPENIA [None]
